FAERS Safety Report 9487365 (Version 1)
Quarter: 2013Q3

REPORT INFORMATION
  Report Type: Spontaneous
  Country: GB (occurrence: GB)
  Receive Date: 20130829
  Receipt Date: 20130829
  Transmission Date: 20140515
  Serious: Yes (Other)
  Sender: FDA-Public Use
  Company Number: GB-009507513-1308GBR013922

PATIENT
  Age: 24 Year
  Sex: Male

DRUGS (1)
  1. PROPECIA 1MG FILM-COATED TABLET [Suspect]
     Indication: ANDROGENETIC ALOPECIA
     Dosage: 1 DF, QD
     Route: 048
     Dates: start: 2010, end: 20130812

REACTIONS (6)
  - Psychiatric symptom [Unknown]
  - Depression [Unknown]
  - Mood altered [Not Recovered/Not Resolved]
  - Fatigue [Unknown]
  - Anger [Unknown]
  - Erectile dysfunction [Not Recovered/Not Resolved]
